FAERS Safety Report 14776689 (Version 1)
Quarter: 2018Q2

REPORT INFORMATION
  Report Type: Spontaneous
  Country: FR (occurrence: FR)
  Receive Date: 20180419
  Receipt Date: 20180419
  Transmission Date: 20180711
  Serious: Yes (Other)
  Sender: FDA-Public Use
  Company Number: FR-MERCK KGAA-2045996

PATIENT
  Age: 30 Year
  Sex: Female

DRUGS (1)
  1. NOVOTHYROX [Suspect]
     Active Substance: LEVOTHYROXINE SODIUM
     Indication: PRODUCT USED FOR UNKNOWN INDICATION
     Dates: start: 2017

REACTIONS (13)
  - Loss of personal independence in daily activities [None]
  - Alopecia [None]
  - Disturbance in attention [None]
  - Quality of life decreased [None]
  - Migraine [None]
  - Somnolence [None]
  - Impaired work ability [None]
  - Chest pain [None]
  - Myalgia [None]
  - Arthralgia [None]
  - Angina pectoris [None]
  - Sleep disorder [None]
  - Fatigue [None]

NARRATIVE: CASE EVENT DATE: 201705
